FAERS Safety Report 9202434 (Version 1)
Quarter: 2013Q1

REPORT INFORMATION
  Report Type: Spontaneous
  Country: US (occurrence: None)
  Receive Date: 20130329
  Receipt Date: 20130329
  Transmission Date: 20140127
  Serious: Yes (Hospitalization)
  Sender: FDA-Public Use
  Company Number: None

PATIENT
  Age: 53 Year
  Sex: Female
  Weight: 65.77 kg

DRUGS (1)
  1. SERTRALINE [Suspect]
     Indication: ANTIDEPRESSANT THERAPY
     Dosage: RX# 494811 02/2014
     Dates: start: 20130125, end: 20130207

REACTIONS (4)
  - Suicidal ideation [None]
  - Grand mal convulsion [None]
  - Loss of employment [None]
  - Paranoia [None]
